FAERS Safety Report 5565547-3 (Version None)
Quarter: 2007Q4

REPORT INFORMATION
  Report Type: 
  Country: None (occurrence: None)
  Receive Date: 20071218
  Receipt Date: 20050728
  Transmission Date: 20080405
  Serious: Yes (Death, Hospitalization)
  Sender: FDA-Public Use
  Company Number: US-ROCHE-412446

PATIENT
  Age: 69 Year
  Sex: Male
  Weight: 36.3 kg

DRUGS (1)
  1. FUZEON [Suspect]
     Route: 058
     Dates: start: 20040101, end: 20050101

REACTIONS (3)
  - ACQUIRED IMMUNODEFICIENCY SYNDROME [None]
  - HYPOTENSION [None]
  - SEPSIS [None]
